FAERS Safety Report 16657172 (Version 2)
Quarter: 2019Q3

REPORT INFORMATION
  Report Type: Spontaneous
  Country: JP (occurrence: JP)
  Receive Date: 20190801
  Receipt Date: 20190823
  Transmission Date: 20191004
  Serious: Yes (Hospitalization, Other)
  Sender: FDA-Public Use
  Company Number: JP-SA-2019SA203739

PATIENT
  Age: 54 Year
  Sex: Male
  Weight: 64.6 kg

DRUGS (2)
  1. DELLEGRA COMBINATION TABLETS [Suspect]
     Active Substance: FEXOFENADINE HYDROCHLORIDE\PSEUDOEPHEDRINE HYDROCHLORIDE
     Indication: PRODUCT USED FOR UNKNOWN INDICATION
     Route: 048
  2. CRESTOR [Concomitant]
     Active Substance: ROSUVASTATIN CALCIUM
     Indication: DYSLIPIDAEMIA
     Dosage: 2.3 MG, QD
     Route: 048

REACTIONS (5)
  - Renal tubular necrosis [Recovering/Resolving]
  - Renal impairment [Recovering/Resolving]
  - Oliguria [Recovering/Resolving]
  - Face oedema [Recovering/Resolving]
  - Malaise [Recovering/Resolving]

NARRATIVE: CASE EVENT DATE: 20190628
